FAERS Safety Report 14508717 (Version 1)
Quarter: 2018Q1

REPORT INFORMATION
  Report Type: Spontaneous
  Country: FR (occurrence: FR)
  Receive Date: 20180209
  Receipt Date: 20180209
  Transmission Date: 20180509
  Serious: Yes (Hospitalization)
  Sender: FDA-Public Use
  Company Number: FR-MERCK KGAA-2041674

PATIENT
  Age: 83 Year
  Sex: Male
  Weight: 70.7 kg

DRUGS (11)
  1. LINEZOLIDE [Suspect]
     Active Substance: LINEZOLID
     Route: 048
     Dates: start: 20171020, end: 20171107
  2. TYGACIL [Suspect]
     Active Substance: TIGECYCLINE
     Route: 042
     Dates: start: 20171025, end: 20171107
  3. TRAMADOL. [Suspect]
     Active Substance: TRAMADOL
     Route: 048
     Dates: end: 20171107
  4. NOVOTHYROX [Suspect]
     Active Substance: LEVOTHYROXINE SODIUM
     Indication: HYPOTHYROIDISM
     Route: 048
     Dates: end: 20171107
  5. AMAREL [Suspect]
     Active Substance: GLIMEPIRIDE
     Route: 048
     Dates: end: 20171103
  6. LOVENOX [Concomitant]
     Active Substance: ENOXAPARIN SODIUM
  7. PANTOPRAZOLE [Suspect]
     Active Substance: PANTOPRAZOLE
     Route: 048
     Dates: start: 20170925, end: 20171107
  8. BISOPROLOL HEMIFUMARATE [Suspect]
     Active Substance: BISOPROLOL FUMARATE
     Route: 048
  9. CALCIDOSE (LEKOVIT CA) [Concomitant]
  10. IMOVANE [Suspect]
     Active Substance: ZOPICLONE
     Route: 048
     Dates: start: 20171003, end: 20171107
  11. PROZAC [Concomitant]
     Active Substance: FLUOXETINE HYDROCHLORIDE

REACTIONS (2)
  - Confusional state [Recovered/Resolved]
  - Hypoglycaemia [Recovered/Resolved]

NARRATIVE: CASE EVENT DATE: 20171030
